FAERS Safety Report 10128666 (Version 1)
Quarter: 2014Q2

REPORT INFORMATION
  Report Type: Spontaneous
  Country: CH (occurrence: CH)
  Receive Date: 20140428
  Receipt Date: 20140428
  Transmission Date: 20141212
  Serious: Yes (Hospitalization)
  Sender: FDA-Public Use
  Company Number: CH-ROCHE-1385216

PATIENT
  Age: 58 Year
  Sex: Male
  Weight: 85 kg

DRUGS (21)
  1. COPEGUS [Suspect]
     Indication: PRODUCT USED FOR UNKNOWN INDICATION
     Dosage: SHORT TERM?REDUCED TO 800 MG FROM 07 MAR 2014
     Route: 048
     Dates: start: 20140226
  2. SYNAGIS [Suspect]
     Indication: RESPIRATORY SYNCYTIAL VIRUS TEST
     Route: 042
     Dates: start: 20140308, end: 20140308
  3. VFEND [Suspect]
     Indication: PNEUMONIA FUNGAL
     Route: 048
     Dates: start: 20140225
  4. VFEND [Suspect]
     Route: 048
     Dates: start: 20140227, end: 20140311
  5. MERONEM [Suspect]
     Indication: PNEUMONIA
     Route: 042
     Dates: start: 20140307
  6. MORPHINE [Suspect]
     Indication: PRODUCT USED FOR UNKNOWN INDICATION
     Route: 042
     Dates: start: 20140307, end: 20140310
  7. PREDNISONE [Suspect]
     Indication: PRODUCT USED FOR UNKNOWN INDICATION
     Route: 048
  8. SERESTA [Suspect]
     Indication: PRODUCT USED FOR UNKNOWN INDICATION
     Route: 048
  9. PROGRAF [Suspect]
     Indication: PROPHYLAXIS
     Dosage: LONG TERM
     Route: 048
  10. LYRICA [Suspect]
     Indication: PRODUCT USED FOR UNKNOWN INDICATION
     Route: 048
     Dates: start: 20140307
  11. TRAMAL [Suspect]
     Indication: PRODUCT USED FOR UNKNOWN INDICATION
     Dosage: LONG TERM
     Route: 065
  12. TEMESTA (SWITZERLAND) [Suspect]
     Indication: PRODUCT USED FOR UNKNOWN INDICATION
     Route: 048
     Dates: start: 20140221, end: 20140309
  13. CELLCEPT [Concomitant]
     Route: 048
  14. LISITRIL [Concomitant]
     Route: 048
     Dates: end: 20140307
  15. AMLODIPINE [Concomitant]
     Route: 048
  16. ASPIRIN [Concomitant]
     Route: 048
  17. JANUMET [Concomitant]
     Route: 048
  18. INSULIN [Concomitant]
     Route: 058
  19. PANTOZOL (SWITZERLAND) [Concomitant]
     Route: 048
     Dates: end: 20140307
  20. ESOMEPRAZOLE [Concomitant]
     Route: 048
     Dates: end: 20140307
  21. HALOPERIDOL [Concomitant]

REACTIONS (6)
  - Confusional state [Recovering/Resolving]
  - Withdrawal syndrome [Recovering/Resolving]
  - Off label use [Unknown]
  - Underdose [Unknown]
  - Overdose [Unknown]
  - Incorrect dose administered [Unknown]
